FAERS Safety Report 9551022 (Version 1)
Quarter: 2013Q3

REPORT INFORMATION
  Report Type: Spontaneous
  Country: US (occurrence: US)
  Receive Date: 20130924
  Receipt Date: 20130924
  Transmission Date: 20140515
  Serious: No
  Sender: FDA-Public Use
  Company Number: US-SANOFI-AVENTIS-2013SA052219

PATIENT
  Age: 59 Year
  Sex: Female
  Weight: 111.13 kg

DRUGS (6)
  1. AUBAGIO [Suspect]
     Indication: MULTIPLE SCLEROSIS
     Route: 048
     Dates: start: 20121123
  2. UNKNOWDRUG [Concomitant]
     Indication: BLOOD CHOLESTEROL
     Dates: start: 2007
  3. LEVOTHYROXINE [Concomitant]
     Indication: THYROID DISORDER
     Dates: start: 2007
  4. LORATADINE [Concomitant]
     Indication: SINUS DISORDER
     Dates: start: 2010
  5. VITAMIN D3 [Concomitant]
     Dates: start: 2008
  6. CALCIUM [Concomitant]
     Dates: start: 2008

REACTIONS (1)
  - Feeling hot [Not Recovered/Not Resolved]
